FAERS Safety Report 4718881-0 (Version None)
Quarter: 2005Q3

REPORT INFORMATION
  Report Type: 
  Country: None (occurrence: None)
  Receive Date: 20050719
  Receipt Date: 20050701
  Transmission Date: 20060218
  Serious: Yes (Death, Hospitalization)
  Sender: FDA-Public Use
  Company Number: GBS050717783

PATIENT
  Age: 75 Year
  Sex: Female

DRUGS (31)
  1. XIGRIS [Suspect]
     Indication: SEPTIC SHOCK
     Dosage: 24 MG/KG/HR
     Dates: start: 20050605, end: 20050608
  2. HEPARIN [Concomitant]
  3. HUMAN ACTRAPID (INSULIN HUMAN) [Concomitant]
  4. ADRENALINE [Concomitant]
  5. AMIODARONE [Concomitant]
  6. FLOLAN (EPOPROSTENOL) [Concomitant]
  7. GLUTAMINE [Concomitant]
  8. PROPOFOL [Concomitant]
  9. FENTANYL [Concomitant]
  10. SODIUM BICARBONATE [Concomitant]
  11. NORADRENALINE [Concomitant]
  12. POTASSIUM CHLORIDE [Concomitant]
  13. ACETAMINOPHEN [Concomitant]
  14. CLARITHROMYCIN [Concomitant]
  15. CEFUROXIME [Concomitant]
  16. ENOXAPARIN SODIUM [Concomitant]
  17. BETOPTIC (BETAXOLOL HYDROCHLORIDE0 [Concomitant]
  18. CEFACLOR [Concomitant]
  19. AVELOX [Concomitant]
  20. ATROVENT [Concomitant]
  21. ALBUTEROL SULFATE HFA [Concomitant]
  22. AMPHOTERICIN (AMPHOTERICIN B0 [Concomitant]
  23. TOBRAMYCIN [Concomitant]
  24. COLISTIN SULFATE [Concomitant]
  25. HYDROCORTISONE (HYDROCORTISONE   /00028601/) [Concomitant]
  26. MEROPENEM [Concomitant]
  27. PARVOLEX (ACETYLCYSTEINE) [Concomitant]
  28. METOCLOPRAMIDE [Concomitant]
  29. OMEPRAZOLE [Concomitant]
  30. TEICOPLANIN [Concomitant]
  31. FLUCONAZOLE [Concomitant]

REACTIONS (4)
  - COAGULOPATHY [None]
  - COMA [None]
  - SUBARACHNOID HAEMORRHAGE [None]
  - THROMBOCYTOPENIA [None]
